FAERS Safety Report 24291464 (Version 1)
Quarter: 2024Q3

REPORT INFORMATION
  Report Type: Spontaneous
  Country: US (occurrence: None)
  Receive Date: 20240906
  Receipt Date: 20240906
  Transmission Date: 20241017
  Serious: No
  Sender: DOMPE FARMACEUTICI
  Company Number: US-FARMAPROD-202308-202309-2652

PATIENT
  Age: 17 Year
  Sex: Female

DRUGS (7)
  1. OXERVATE [Suspect]
     Active Substance: CENEGERMIN-BKBJ
     Indication: Neurotrophic keratopathy
     Route: 047
     Dates: start: 20220824
  2. GUANFACINE HYDROCHLORIDE [Concomitant]
     Active Substance: GUANFACINE HYDROCHLORIDE
  3. ABILIFY [Concomitant]
     Active Substance: ARIPIPRAZOLE
  4. MIRTAZAPINE [Concomitant]
     Active Substance: MIRTAZAPINE
  5. FLINTSTON VITAMIN WITH IRON [Concomitant]
  6. VITAMIN D3 [Concomitant]
     Active Substance: CHOLECALCIFEROL
  7. LEXAPRO [Concomitant]
     Active Substance: ESCITALOPRAM OXALATE

REACTIONS (3)
  - Inappropriate schedule of product administration [Unknown]
  - Product dose omission issue [Unknown]
  - Product administration error [Unknown]
